FAERS Safety Report 6783095-X (Version None)
Quarter: 2010Q2

REPORT INFORMATION
  Report Type: 
  Country: None (occurrence: None)
  Receive Date: 20100622
  Receipt Date: 20100609
  Transmission Date: 20101027
  Serious: Yes (Other)
  Sender: FDA-Public Use
  Company Number: DE-BAYER-201028220GPV

PATIENT
  Sex: Female

DRUGS (1)
  1. SORAFENIB [Suspect]
     Indication: ACUTE MYELOID LEUKAEMIA

REACTIONS (1)
  - NEUROTOXICITY [None]
